FAERS Safety Report 9091036 (Version 1)
Quarter: 2013Q1

REPORT INFORMATION
  Report Type: Spontaneous
  Country: US (occurrence: US)
  Receive Date: 20130131
  Receipt Date: 20130131
  Transmission Date: 20140127
  Serious: Yes (Other)
  Sender: FDA-Public Use
  Company Number: US-009507513-1301USA014224

PATIENT
  Sex: Female

DRUGS (12)
  1. SINGULAIR [Suspect]
  2. ESOMEPRAZOLE [Concomitant]
  3. IBUPROFEN [Concomitant]
  4. ACETAMINOPHEN (+) OXYCODONE HYDROCHLORIDE [Concomitant]
  5. RISPERIDONE [Concomitant]
  6. TRAZODONE HYDROCHLORIDE [Concomitant]
  7. ACETAMINOPHEN [Concomitant]
  8. ZINC SALICYLATE [Concomitant]
  9. SANCTURA [Concomitant]
  10. ATORVASTATIN [Concomitant]
  11. FLUOXETINE [Concomitant]
  12. DONEPEZIL [Concomitant]

REACTIONS (1)
  - Suicide attempt [Unknown]
